FAERS Safety Report 9843482 (Version 1)
Quarter: 2013Q4

REPORT INFORMATION
  Report Type: Spontaneous
  Country: US (occurrence: None)
  Receive Date: 20131219
  Receipt Date: 20131219
  Transmission Date: 20140711
  Serious: Yes (Hospitalization, Other)
  Sender: FDA-Public Use
  Company Number: 163-20785-13063133

PATIENT
  Age: 69 Year
  Sex: Female

DRUGS (2)
  1. THALOMID [Suspect]
     Indication: PLASMA CELL MYELOMA
     Dosage: 50 MG. 1 IN 2 D, PO
     Route: 048
     Dates: start: 20121020, end: 20130308
  2. CARFILZOMIB [Suspect]
     Indication: PRODUCT USED FOR UNKNOWN INDICATION

REACTIONS (5)
  - Sepsis [None]
  - Pyrexia [None]
  - Restlessness [None]
  - Plasma cell myeloma [None]
  - Oedema [None]
